FAERS Safety Report 4656627-5 (Version None)
Quarter: 2005Q2

REPORT INFORMATION
  Report Type: 
  Country: None (occurrence: None)
  Receive Date: 20050506
  Receipt Date: 20050422
  Transmission Date: 20051028
  Serious: Yes (Hospitalization)
  Sender: FDA-Public Use
  Company Number: 8009828

PATIENT
  Age: 78 Year
  Sex: Female

DRUGS (8)
  1. KEPPRA [Suspect]
     Dosage: 1000 MG /D PO
     Route: 048
     Dates: start: 20041210
  2. MOVICOL [Suspect]
     Dosage: 1 DF /D PO
     Route: 048
     Dates: start: 20050301, end: 20050309
  3. OXYCONTIN [Suspect]
     Dosage: 20 MG /D PO
     Route: 048
     Dates: start: 20050226, end: 20050307
  4. DEPAKENE [Suspect]
     Dosage: PO
     Route: 048
     Dates: start: 20051210
  5. MOPRAL [Suspect]
     Dosage: 20 MG / D PO
     Route: 048
     Dates: start: 20050303, end: 20050307
  6. PROFENID [Suspect]
     Dosage: 100 MG / D PO
     Route: 048
     Dates: start: 20050303, end: 20050305
  7. NEURONTIN [Suspect]
     Dosage: PO
     Route: 048
  8. PRAXILENE [Suspect]
     Dosage: PO
     Route: 048

REACTIONS (2)
  - INFLAMMATION [None]
  - RASH MORBILLIFORM [None]
